FAERS Safety Report 16541529 (Version 3)
Quarter: 2019Q4

REPORT INFORMATION
  Report Type: Report from Study
  Country: US (occurrence: US)
  Receive Date: 20190708
  Receipt Date: 20191021
  Transmission Date: 20200122
  Serious: Yes (Other)
  Sender: FDA-Public Use
  Company Number: PHHY2019US153285

PATIENT
  Age: 61 Year
  Sex: Male

DRUGS (6)
  1. R CHOP [Concomitant]
     Active Substance: CYCLOPHOSPHAMIDE\DOXORUBICIN\PREDNISONE\RITUXIMAB\VINCRISTINE
     Indication: CHEMOTHERAPY
     Route: 065
  2. FLUDARABINE [Concomitant]
     Active Substance: FLUDARABINE PHOSPHATE
     Indication: CHEMOTHERAPY
     Route: 065
  3. RICE [Concomitant]
     Active Substance: BROWN RICE\RICE
     Indication: CHEMOTHERAPY
     Route: 065
  4. R GDP [Concomitant]
     Indication: CHEMOTHERAPY
     Route: 065
  5. KYMRIAH [Suspect]
     Active Substance: TISAGENLECLEUCEL
     Indication: DIFFUSE LARGE B-CELL LYMPHOMA
     Dosage: UNK, ONCE/SINGLE
     Route: 041
     Dates: start: 2018
  6. CYCLOPHOSPHAMIDE. [Concomitant]
     Active Substance: CYCLOPHOSPHAMIDE
     Indication: CHEMOTHERAPY
     Route: 065

REACTIONS (9)
  - Haematocrit decreased [Unknown]
  - Hypogammaglobulinaemia [Unknown]
  - Haemoglobin decreased [Unknown]
  - Malignant neoplasm progression [Unknown]
  - Lymphocyte count decreased [Unknown]
  - Diffuse large B-cell lymphoma [Unknown]
  - Platelet count decreased [Unknown]
  - White blood cell count decreased [Unknown]
  - Neutrophil count decreased [Unknown]
